FAERS Safety Report 22930580 (Version 2)
Quarter: 2024Q1

REPORT INFORMATION
  Report Type: Report from Study
  Country: CA (occurrence: CA)
  Receive Date: 20230911
  Receipt Date: 20240206
  Transmission Date: 20240410
  Serious: Yes (Other)
  Sender: FDA-Public Use
  Company Number: CA-MYLANLABS-2023M1096149

PATIENT

DRUGS (1)
  1. HULIO [Suspect]
     Active Substance: ADALIMUMAB-FKJP
     Indication: Ankylosing spondylitis
     Dosage: 40 MILLIGRAM, BIWEEKLY (EVERY 2 WEEKS)
     Route: 058
     Dates: start: 20220905

REACTIONS (7)
  - Angioedema [Unknown]
  - Anal inflammation [Unknown]
  - Rash macular [Unknown]
  - Eye pruritus [Unknown]
  - Eye swelling [Unknown]
  - Contusion [Unknown]
  - Drug ineffective [Unknown]
